FAERS Safety Report 10090027 (Version 1)
Quarter: 2014Q2

REPORT INFORMATION
  Report Type: Spontaneous
  Country: AU (occurrence: AU)
  Receive Date: 20140421
  Receipt Date: 20140421
  Transmission Date: 20141212
  Serious: Yes (Hospitalization)
  Sender: FDA-Public Use
  Company Number: AU-ROCHE-1380573

PATIENT
  Age: 75 Year
  Sex: Male

DRUGS (17)
  1. NAPROXEN [Suspect]
     Indication: PAIN
     Route: 065
  2. PARACETAMOL/CODEINE [Concomitant]
     Indication: PAIN
     Dosage: 1000/60MG
     Route: 065
  3. IBUPROFEN [Concomitant]
     Indication: PAIN
     Route: 065
  4. OXYCODONE [Concomitant]
     Indication: PAIN
     Route: 065
  5. OXYCODONE [Concomitant]
     Route: 065
  6. MORPHINE [Concomitant]
     Route: 048
  7. MORPHINE [Concomitant]
     Dosage: BREAKTHROUGH DOSES
     Route: 065
  8. MORPHINE [Concomitant]
     Route: 058
  9. LORAZEPAM [Concomitant]
     Route: 065
  10. DOCUSATE SODIUM [Concomitant]
     Indication: CONSTIPATION
     Route: 065
  11. SENNA [Concomitant]
     Indication: CONSTIPATION
     Route: 065
  12. SENNA [Concomitant]
     Route: 065
  13. HALOPERIDOL [Concomitant]
     Dosage: REPEAT IN 2-4 HOURS IF DELIRIUM PERSISTED
     Route: 048
  14. FENTANYL [Concomitant]
     Route: 042
  15. MIDAZOLAM HYDROCHLORIDE [Concomitant]
     Route: 042
  16. LACTULOSE [Concomitant]
     Route: 065
  17. BISACODYL [Concomitant]

REACTIONS (11)
  - Back pain [Unknown]
  - Fall [Unknown]
  - Decreased appetite [Unknown]
  - Nausea [Unknown]
  - Constipation [Unknown]
  - Weight decreased [Unknown]
  - Abnormal behaviour [Unknown]
  - Confusional state [Unknown]
  - Vomiting [Unknown]
  - Abdominal distension [Unknown]
  - Delirium [Unknown]
